FAERS Safety Report 9641433 (Version 1)
Quarter: 2013Q4

REPORT INFORMATION
  Report Type: Report from Study
  Country: US (occurrence: US)
  Receive Date: 20131023
  Receipt Date: 20131023
  Transmission Date: 20140711
  Serious: No
  Sender: FDA-Public Use
  Company Number: US-ABBVIE-13P-163-1056497-00

PATIENT
  Age: 41 Year
  Sex: Female
  Weight: 91.25 kg

DRUGS (8)
  1. LUPRON DEPOT [Suspect]
     Indication: UTERINE LEIOMYOMA
     Dates: start: 20121210
  2. GEODON [Concomitant]
     Indication: DEPRESSION
  3. WELLBUTRIN [Concomitant]
     Indication: DEPRESSION
  4. STRATTERA [Concomitant]
     Indication: DEPRESSION
  5. AMBIEN [Concomitant]
     Indication: INSOMNIA
  6. ESTROGEN [Concomitant]
     Indication: OSTEOPOROSIS PROPHYLAXIS
     Dates: start: 201212
  7. BENZTROPINE [Concomitant]
     Indication: PRODUCT USED FOR UNKNOWN INDICATION
  8. PRILOSEC [Concomitant]
     Indication: PRODUCT USED FOR UNKNOWN INDICATION

REACTIONS (4)
  - Vision blurred [Not Recovered/Not Resolved]
  - Presbyopia [Not Recovered/Not Resolved]
  - Hot flush [Not Recovered/Not Resolved]
  - Weight increased [Recovered/Resolved]
